FAERS Safety Report 5521247-7 (Version None)
Quarter: 2007Q4

REPORT INFORMATION
  Report Type: 
  Country: None (occurrence: None)
  Receive Date: 20071119
  Receipt Date: 20071114
  Transmission Date: 20080405
  Serious: No
  Sender: FDA-Public Use
  Company Number: US-ASTRAZENECA-2007UW22074

PATIENT
  Age: 48 Year
  Sex: Female
  Weight: 74.4 kg

DRUGS (14)
  1. FASLODEX [Suspect]
     Indication: BREAST CANCER METASTATIC
     Route: 030
     Dates: start: 20070521
  2. CITRACAL [Concomitant]
  3. MULTI-VITAMIN [Concomitant]
  4. PROZAC [Concomitant]
     Indication: ANTIDEPRESSANT THERAPY
     Route: 048
     Dates: start: 20070814
  5. SYNTHROID [Concomitant]
     Indication: HYPOTHYROIDISM
     Route: 048
     Dates: start: 20070607
  6. ULTRAM [Concomitant]
     Indication: PAIN
     Route: 048
  7. UNISOM [Concomitant]
     Indication: INSOMNIA
     Dates: start: 20050202
  8. VICODIN [Concomitant]
     Indication: PAIN
     Dosage: 500/5 MG
     Route: 048
     Dates: start: 20070511
  9. ZYPREXA [Concomitant]
     Route: 048
     Dates: start: 20070821
  10. AMBIEN CR [Concomitant]
     Indication: INSOMNIA
     Route: 048
     Dates: start: 20070814
  11. ATIVAN [Concomitant]
     Indication: ANXIETY
     Route: 048
     Dates: start: 20070813
  12. BENADRYL [Concomitant]
  13. IMMUNOTHERAPY [Concomitant]
     Indication: NEOPLASM
  14. AROMASIN [Concomitant]
     Indication: BREAST CANCER METASTATIC
     Dates: start: 20070514

REACTIONS (3)
  - INJECTION SITE ERYTHEMA [None]
  - INJECTION SITE PAIN [None]
  - INJECTION SITE VESICLES [None]
